FAERS Safety Report 4848227-9 (Version None)
Quarter: 2005Q4

REPORT INFORMATION
  Report Type: 
  Country: None (occurrence: None)
  Receive Date: 20051208
  Receipt Date: 20051202
  Transmission Date: 20060501
  Serious: Yes (Other)
  Sender: FDA-Public Use
  Company Number: JP-JNJFOC-20051200409

PATIENT
  Sex: Male

DRUGS (2)
  1. TAVANIC [Suspect]
     Indication: PNEUMONIA
     Dosage: ONLY 1 DOSE RECEIVED.
     Route: 042
     Dates: start: 20050820, end: 20050821
  2. TAVANIC [Suspect]
     Route: 048
     Dates: start: 20050821, end: 20050830

REACTIONS (2)
  - DEAFNESS UNILATERAL [None]
  - TINNITUS [None]
